FAERS Safety Report 15552470 (Version 2)
Quarter: 2018Q4

REPORT INFORMATION
  Report Type: Spontaneous
  Country: US (occurrence: US)
  Receive Date: 20181025
  Receipt Date: 20181119
  Transmission Date: 20190205
  Serious: No
  Sender: FDA-Public Use
  Company Number: US-LEXICON PHARMACEUTICALS, INC-18-1606-01304

PATIENT
  Age: 83 Year
  Sex: Female

DRUGS (19)
  1. TELOTRISTAT ETHYL [Suspect]
     Active Substance: TELOTRISTAT ETHYL
     Indication: GASTROINTESTINAL INFLAMMATION
     Route: 048
     Dates: start: 20181013
  2. NORCO [Concomitant]
     Active Substance: ACETAMINOPHEN\HYDROCODONE BITARTRATE
  3. LORAZEPAM. [Concomitant]
     Active Substance: LORAZEPAM
  4. METOPROLOL. [Concomitant]
     Active Substance: METOPROLOL
  5. CREON [Concomitant]
     Active Substance: PANCRELIPASE AMYLASE\PANCRELIPASE LIPASE\PANCRELIPASE PROTEASE
  6. VITAMIN B12 [Concomitant]
     Active Substance: CYANOCOBALAMIN
  7. TELOTRISTAT ETHYL [Suspect]
     Active Substance: TELOTRISTAT ETHYL
     Indication: CARCINOID SYNDROME
     Route: 048
     Dates: start: 20181009, end: 20181012
  8. LOSARTAN. [Concomitant]
     Active Substance: LOSARTAN
  9. CLONIDINE. [Concomitant]
     Active Substance: CLONIDINE
  10. LOMOTIL [Concomitant]
     Active Substance: ATROPINE SULFATE\DIPHENOXYLATE HYDROCHLORIDE
  11. CARAFATE [Concomitant]
     Active Substance: SUCRALFATE
  12. METRONIDAZOLE. [Concomitant]
     Active Substance: METRONIDAZOLE
  13. MIRTAZAPINE. [Concomitant]
     Active Substance: MIRTAZAPINE
  14. TRAMADOL. [Concomitant]
     Active Substance: TRAMADOL
  15. AMLODIPINE [Concomitant]
     Active Substance: AMLODIPINE BESYLATE
  16. ZOFRAN [Concomitant]
     Active Substance: ONDANSETRON HYDROCHLORIDE
  17. ALLOPURINOL. [Concomitant]
     Active Substance: ALLOPURINOL
  18. CYPROHEPTADINE. [Concomitant]
     Active Substance: CYPROHEPTADINE
  19. POTASSIUM CHLORIDE. [Concomitant]
     Active Substance: POTASSIUM CHLORIDE

REACTIONS (4)
  - Gastrointestinal infection [Unknown]
  - Nausea [Recovering/Resolving]
  - Abdominal pain [Recovering/Resolving]
  - Gastrooesophageal reflux disease [Unknown]

NARRATIVE: CASE EVENT DATE: 20181012
